FAERS Safety Report 8115692-3 (Version None)
Quarter: 2012Q1

REPORT INFORMATION
  Report Type: 
  Country: None (occurrence: None)
  Receive Date: 20120206
  Receipt Date: 20120126
  Transmission Date: 20120608
  Serious: Yes (Hospitalization)
  Sender: FDA-Public Use
  Company Number: GB-SANOFI-AVENTIS-2012SA006183

PATIENT
  Age: 26 Year
  Sex: Male

DRUGS (5)
  1. LEVOTHYROXINE SODIUM [Concomitant]
  2. SIMVASTATIN [Concomitant]
  3. INSULIN GLARGINE [Suspect]
     Dosage: DOSE: NINE 3 ML CATRIDGES 3HOURS PREVIOUSLY. DOSE:2700 UNIT(S)
     Route: 058
  4. INSULIN GLARGINE [Suspect]
     Dosage: DOSE: SEVEN 3 ML CARTRIDGES OVER NEXT FEW HOURS. DOSE:2100 UNIT(S)
     Route: 058
  5. INSULIN LISPRO [Concomitant]
     Dosage: DOSE:20 UNIT(S)

REACTIONS (5)
  - ABDOMINAL PAIN UPPER [None]
  - OVERDOSE [None]
  - HEPATOMEGALY [None]
  - LIVER INJURY [None]
  - TRANSAMINASES INCREASED [None]
